FAERS Safety Report 9618959 (Version 2)
Quarter: 2013Q4

REPORT INFORMATION
  Report Type: Spontaneous
  Country: US (occurrence: US)
  Receive Date: 20131014
  Receipt Date: 20131119
  Transmission Date: 20140711
  Serious: Yes (Other)
  Sender: FDA-Public Use
  Company Number: US-PFIZER INC-2013291128

PATIENT
  Sex: Female

DRUGS (3)
  1. DEPO-MEDROL [Suspect]
     Indication: BACK PAIN
     Dosage: UNK
     Route: 008
     Dates: start: 2009, end: 2010
  2. DEPO-MEDROL [Suspect]
     Indication: PAIN IN EXTREMITY
  3. FLUCAINE [Concomitant]
     Dosage: UNK

REACTIONS (2)
  - Meningitis [Unknown]
  - Spinal disorder [Unknown]
